FAERS Safety Report 17304826 (Version 1)
Quarter: 2020Q1

REPORT INFORMATION
  Report Type: Report from Study
  Country: FR (occurrence: FR)
  Receive Date: 20200122
  Receipt Date: 20200122
  Transmission Date: 20200409
  Serious: Yes (Life-Threatening, Other)
  Sender: FDA-Public Use
  Company Number: FR-BAXTER-2020BAX000894

PATIENT
  Age: 23 Year
  Sex: Female
  Weight: 58 kg

DRUGS (6)
  1. PRIMPERAN [Concomitant]
     Active Substance: METOCLOPRAMIDE HYDROCHLORIDE
     Indication: PRODUCT USED FOR UNKNOWN INDICATION
     Dosage: 10 MG, QD
     Route: 065
     Dates: start: 20181127
  2. ENDOXAN 1000 MG, POUDRE POUR SOLUTIONINJECTABLE [Suspect]
     Active Substance: CYCLOPHOSPHAMIDE
     Indication: BONE MARROW CONDITIONING REGIMEN
     Dosage: 500 MG/M2, QD (800 MG X3 TOTAL DOSE)
     Route: 065
     Dates: start: 20181229, end: 20181231
  3. ACTISKENAN [Concomitant]
     Active Substance: MORPHINE SULFATE
     Indication: PAIN
     Dosage: 10 MG, Q4HR
     Route: 065
     Dates: start: 20181127
  4. LYRICA [Concomitant]
     Active Substance: PREGABALIN
     Indication: PAIN
     Dosage: 100 MG, QD
     Route: 065
     Dates: start: 20181127
  5. FLUDARABINE [Suspect]
     Active Substance: FLUDARABINE PHOSPHATE
     Indication: BONE MARROW CONDITIONING REGIMEN
     Dosage: 30 MG/M2, QD (47.5 MG X3 TOTAL DOSE)
     Route: 065
     Dates: start: 20181229, end: 20181231
  6. MACROGOL [Concomitant]
     Active Substance: POLYETHYLENE GLYCOLS
     Indication: CONSTIPATION
     Dosage: UNK, DEPENDING ON STOOLS
     Route: 065
     Dates: start: 20181127

REACTIONS (4)
  - Cytokine release syndrome [Recovered/Resolved]
  - CAR T-cell-related encephalopathy syndrome [Recovered/Resolved]
  - CAR T-cell-related encephalopathy syndrome [Recovered/Resolved]
  - Disease progression [Recovered/Resolved]

NARRATIVE: CASE EVENT DATE: 20190107
